FAERS Safety Report 8977075 (Version 1)
Quarter: 2012Q4

REPORT INFORMATION
  Report Type: Report from Study
  Country: US (occurrence: US)
  Receive Date: 20121220
  Receipt Date: 20121220
  Transmission Date: 20130627
  Serious: Yes (Hospitalization)
  Sender: FDA-Public Use
  Company Number: US-JNJFOC-20121208825

PATIENT
  Sex: Male
  Weight: 80.29 kg

DRUGS (8)
  1. STELARA [Suspect]
     Indication: PSORIASIS
     Dosage: 2 doses total
     Route: 058
  2. GABAPENTIN [Concomitant]
     Indication: NEURALGIA
     Route: 048
     Dates: start: 200907
  3. LIDOCAINE [Concomitant]
     Indication: NEURALGIA
     Dosage: 5% 12 hours on and 12 hours off
     Route: 061
     Dates: start: 200907
  4. SIMVASTATIN [Concomitant]
     Indication: BLOOD CHOLESTEROL ABNORMAL
     Route: 048
  5. PLAVIX [Concomitant]
     Route: 048
  6. SEROQUEL [Concomitant]
     Indication: SLEEP DISORDER
     Route: 048
  7. LISINOPRIL [Concomitant]
     Indication: BLOOD PRESSURE ABNORMAL
     Route: 048
  8. PRILOSEC [Concomitant]

REACTIONS (5)
  - Pulmonary mass [Not Recovered/Not Resolved]
  - Lower limb fracture [Recovered/Resolved]
  - Abnormal loss of weight [Recovering/Resolving]
  - Fall [Recovered/Resolved]
  - Cough [Recovering/Resolving]
